FAERS Safety Report 19130213 (Version 5)
Quarter: 2021Q2

REPORT INFORMATION
  Report Type: Spontaneous
  Country: US (occurrence: US)
  Receive Date: 20210414
  Receipt Date: 20210618
  Transmission Date: 20210717
  Serious: Yes (Other)
  Sender: FDA-Public Use
  Company Number: US-AKCEA THERAPEUTICS, INC.-2021IS001266

PATIENT
  Age: 62 Year
  Sex: Female

DRUGS (8)
  1. ISSD (INTEGRATED SYRINGE SAFETY DEVICE) [Suspect]
     Active Substance: DEVICE
  2. TEGSEDI [Suspect]
     Active Substance: INOTERSEN SODIUM
     Indication: HEREDITARY NEUROPATHIC AMYLOIDOSIS
     Route: 058
     Dates: end: 202103
  3. POTASSIUM [Concomitant]
     Active Substance: POTASSIUM
  4. TEGSEDI [Suspect]
     Active Substance: INOTERSEN SODIUM
     Route: 058
     Dates: start: 20210528
  5. GABAPENTIN. [Concomitant]
     Active Substance: GABAPENTIN
  6. ELIQUIS [Concomitant]
     Active Substance: APIXABAN
  7. TEGSEDI [Suspect]
     Active Substance: INOTERSEN SODIUM
     Indication: POLYNEUROPATHY
     Route: 058
     Dates: end: 202103
  8. FUROSEMIDE. [Concomitant]
     Active Substance: FUROSEMIDE

REACTIONS (17)
  - Crystal urine present [Unknown]
  - Urine protein/creatinine ratio increased [Unknown]
  - Chromaturia [Unknown]
  - Bacterial test positive [Unknown]
  - Urine ketone body present [Unknown]
  - Urinary occult blood positive [Unknown]
  - White blood cells urine positive [Unknown]
  - Injection site rash [Not Recovered/Not Resolved]
  - Creatinine urine increased [Unknown]
  - Urine abnormality [Unknown]
  - Urinary sediment present [Unknown]
  - Urinary casts present [Unknown]
  - Proteinuria [Not Recovered/Not Resolved]
  - Urine leukocyte esterase positive [Unknown]
  - Specific gravity urine abnormal [Unknown]
  - Hypoaesthesia [Not Recovered/Not Resolved]
  - Impaired work ability [Not Recovered/Not Resolved]
